FAERS Safety Report 7675328-2 (Version None)
Quarter: 2011Q3

REPORT INFORMATION
  Report Type: 
  Country: None (occurrence: None)
  Receive Date: 20110810
  Receipt Date: 20110804
  Transmission Date: 20111222
  Serious: Yes (Other)
  Sender: FDA-Public Use
  Company Number: US-MYLANLABS-2011S1016244

PATIENT
  Sex: Female

DRUGS (4)
  1. DILANTIN-125 [Suspect]
     Indication: CONVULSION
     Dates: start: 19990101
  2. PHENYTOIN SODIUM CAP [Suspect]
     Indication: CONVULSION
  3. DILANTIN-125 [Suspect]
  4. DILANTIN-125 [Suspect]

REACTIONS (1)
  - CONVULSION [None]
